FAERS Safety Report 23966359 (Version 1)
Quarter: 2024Q2

REPORT INFORMATION
  Report Type: Spontaneous
  Country: GB (occurrence: GB)
  Receive Date: 20240612
  Receipt Date: 20240612
  Transmission Date: 20240716
  Serious: Yes (Other)
  Sender: FDA-Public Use
  Company Number: GB-Ascend Therapeutics US, LLC-2158022

PATIENT
  Sex: Female

DRUGS (6)
  1. ESTROGEL [Suspect]
     Active Substance: ESTRADIOL
     Indication: Product used for unknown indication
     Route: 065
  2. ESTRADIOL [Suspect]
     Active Substance: ESTRADIOL
     Route: 065
  3. ESTRADIOL [Suspect]
     Active Substance: ESTRADIOL
     Route: 065
  4. ESTRADIOL [Suspect]
     Active Substance: ESTRADIOL
     Route: 065
  5. ESTRADIOL [Suspect]
     Active Substance: ESTRADIOL
     Route: 065
  6. ESTRADIOL [Suspect]
     Active Substance: ESTRADIOL
     Route: 065

REACTIONS (7)
  - Postmenopausal haemorrhage [Unknown]
  - Product quality issue [Unknown]
  - Therapeutic product effect decreased [Unknown]
  - Product design issue [Unknown]
  - Product dispensing error [Unknown]
  - Incorrect dose administered by product [Unknown]
  - Vulvovaginal injury [Unknown]
